FAERS Safety Report 9492921 (Version 1)
Quarter: 2013Q3

REPORT INFORMATION
  Report Type: Spontaneous
  Country: US (occurrence: US)
  Receive Date: 20130902
  Receipt Date: 20130902
  Transmission Date: 20140515
  Serious: No
  Sender: FDA-Public Use
  Company Number: US-009507513-1308USA011221

PATIENT
  Sex: Female

DRUGS (5)
  1. VICTRELIS [Suspect]
     Indication: HEPATITIS C
     Dosage: 800 MG, TID
     Route: 048
     Dates: start: 20130318
  2. PEGASYS [Suspect]
  3. RIBAPAK [Suspect]
  4. IBUPROFEN [Concomitant]
  5. EVAMIST [Concomitant]

REACTIONS (2)
  - Confusional state [Unknown]
  - Memory impairment [Unknown]
